FAERS Safety Report 19508840 (Version 1)
Quarter: 2021Q3

REPORT INFORMATION
  Report Type: Report from Study
  Country: US (occurrence: US)
  Receive Date: 20210708
  Receipt Date: 20210708
  Transmission Date: 20211014
  Serious: Yes (Hospitalization, Other)
  Sender: FDA-Public Use
  Company Number: US-TAKEDA-2021TUS041380

PATIENT
  Sex: Female
  Weight: 89 kg

DRUGS (1)
  1. HUMAN NORMAL IMMUNOGLOBULIN; LIQUID [Suspect]
     Active Substance: HUMAN IMMUNOGLOBULIN G
     Indication: DERMATOMYOSITIS
     Dosage: 36 GRAM, Q4WEEKS
     Route: 042

REACTIONS (3)
  - Therapy interrupted [Unknown]
  - Off label use [Unknown]
  - Hospitalisation [Unknown]
